FAERS Safety Report 20895778 (Version 1)
Quarter: 2022Q2

REPORT INFORMATION
  Report Type: Spontaneous
  Country: US (occurrence: US)
  Receive Date: 20220531
  Receipt Date: 20220531
  Transmission Date: 20220720
  Serious: No
  Sender: FDA-Public Use
  Company Number: US-drreddys-SPO/USA/22/0150052

PATIENT
  Age: 34 Year
  Sex: Female

DRUGS (2)
  1. ACCUTANE [Suspect]
     Active Substance: ISOTRETINOIN
     Indication: Acne cystic
     Dosage: RMA ISSUE DATE: 23 DECEMBER 2021 03:55:51 PM, 28 FEBRUARY 2022 10:17:35 AM, 29 MARCH 2022 09:58:15 A
  2. ACCUTANE [Suspect]
     Active Substance: ISOTRETINOIN
     Dosage: RMA ISSUE DATE:16 NOVEMBER 2021 12:00:00 AM, 25 JANUARY 2022 08:57:22 AM

REACTIONS (2)
  - Rash [Unknown]
  - Product use in unapproved indication [Unknown]
